FAERS Safety Report 8055406-9 (Version None)
Quarter: 2012Q1

REPORT INFORMATION
  Report Type: 
  Country: None (occurrence: None)
  Receive Date: 20120119
  Receipt Date: 20120117
  Transmission Date: 20120608
  Serious: Yes (Death, Other)
  Sender: FDA-Public Use
  Company Number: PHHY2012AR004342

PATIENT
  Sex: Female

DRUGS (1)
  1. ONBREZ [Suspect]
     Indication: AGITATION
     Dosage: UNK
     Dates: start: 20110601

REACTIONS (2)
  - HAEMATEMESIS [None]
  - DEATH [None]
